FAERS Safety Report 23400762 (Version 1)
Quarter: 2024Q1

REPORT INFORMATION
  Report Type: Report from Study
  Country: IE (occurrence: IE)
  Receive Date: 20240115
  Receipt Date: 20240115
  Transmission Date: 20240410
  Serious: Yes (Other)
  Sender: FDA-Public Use
  Company Number: IE-JNJFOC-20240119787

PATIENT
  Sex: Male

DRUGS (4)
  1. ZYTIGA [Suspect]
     Active Substance: ABIRATERONE ACETATE
     Indication: Prostate cancer
     Route: 048
     Dates: start: 20210412
  2. PREDNISOLONE [Concomitant]
     Active Substance: PREDNISOLONE
     Route: 050
  3. IBUPROFEN [Concomitant]
     Active Substance: IBUPROFEN
     Route: 050
  4. ACETAMINOPHEN [Concomitant]
     Active Substance: ACETAMINOPHEN
     Route: 050

REACTIONS (2)
  - Lower respiratory tract infection [Not Recovered/Not Resolved]
  - Influenza [Not Recovered/Not Resolved]
